FAERS Safety Report 6341783-3 (Version None)
Quarter: 2009Q3

REPORT INFORMATION
  Report Type: 
  Country: None (occurrence: None)
  Receive Date: 20090901
  Receipt Date: 20090901
  Transmission Date: 20100115
  Serious: Yes (Other)
  Sender: FDA-Public Use
  Company Number: None

PATIENT
  Age: 52 Year
  Sex: Female
  Weight: 58.0604 kg

DRUGS (2)
  1. THYROID TAB [Suspect]
     Indication: HYPOTHYROIDISM
     Dosage: 2 TABLETS 2XS A DAY PO
     Route: 048
     Dates: start: 20090101, end: 20090511
  2. THYROID TAB [Suspect]
     Dosage: 1 TABLET 1XS A DAY PO
     Route: 048
     Dates: start: 20090101, end: 20090511

REACTIONS (5)
  - CONDITION AGGRAVATED [None]
  - DRUG INEFFECTIVE [None]
  - HYPOTHYROIDISM [None]
  - IRRITABILITY [None]
  - PERIPHERAL COLDNESS [None]
